FAERS Safety Report 15238533 (Version 4)
Quarter: 2019Q1

REPORT INFORMATION
  Report Type: Spontaneous
  Country: CA (occurrence: CA)
  Receive Date: 20180803
  Receipt Date: 20190308
  Transmission Date: 20190417
  Serious: Yes (Death)
  Sender: FDA-Public Use
  Company Number: CA-PFIZER INC-2018307075

PATIENT
  Age: 56 Year
  Sex: Female
  Weight: 54 kg

DRUGS (5)
  1. CODEINE [Suspect]
     Active Substance: CODEINE
     Dosage: UNK
     Route: 065
  2. DIPHENHYDRAMINE HCL [Suspect]
     Active Substance: DIPHENHYDRAMINE HYDROCHLORIDE
     Dosage: UNK
     Route: 065
  3. APO CITALOPRAM [Suspect]
     Active Substance: CITALOPRAM HYDROBROMIDE
     Dosage: UNK
     Route: 065
  4. DEXTROMETHORPHAN HYDROBROMIDE. [Suspect]
     Active Substance: DEXTROMETHORPHAN HYDROBROMIDE
     Dosage: UNK
     Route: 065
  5. CITALOPRAM [Suspect]
     Active Substance: CITALOPRAM HYDROBROMIDE
     Dosage: UNK

REACTIONS (4)
  - Toxicologic test abnormal [Fatal]
  - Opiates positive [Fatal]
  - Postmortem blood drug level increased [Fatal]
  - Toxicity to various agents [Fatal]
